FAERS Safety Report 17685383 (Version 2)
Quarter: 2020Q2

REPORT INFORMATION
  Report Type: Report from Study
  Country: US (occurrence: US)
  Receive Date: 20200420
  Receipt Date: 20200521
  Transmission Date: 20200714
  Serious: No
  Sender: FDA-Public Use
  Company Number: US-SA-2020SA099831

PATIENT
  Age: 77 Year
  Sex: Male

DRUGS (1)
  1. DUPILUMAB [Suspect]
     Active Substance: DUPILUMAB
     Indication: DERMATITIS ATOPIC
     Dosage: 300 MG, QOW
     Route: 058
     Dates: start: 202002

REACTIONS (6)
  - Seborrhoea [Unknown]
  - Vision blurred [Unknown]
  - Dyspnoea [Unknown]
  - Cardiac disorder [Unknown]
  - Eye pruritus [Unknown]
  - Vein disorder [Unknown]

NARRATIVE: CASE EVENT DATE: 2020
